FAERS Safety Report 8676426 (Version 2)
Quarter: 2014Q2

REPORT INFORMATION
  Report Type: Spontaneous
  Country: DE (occurrence: DE)
  Receive Date: 20120720
  Receipt Date: 20140408
  Transmission Date: 20141212
  Serious: Yes (Life-Threatening, Hospitalization, Other)
  Sender: FDA-Public Use
  Company Number: DE-ROCHE-1088361

PATIENT
  Age: 60 Year
  Sex: Female
  Weight: 70 kg

DRUGS (11)
  1. MABTHERA [Suspect]
     Indication: RHEUMATOID ARTHRITIS
     Route: 042
     Dates: start: 20120710
  2. METHOTREXATE [Concomitant]
     Indication: RHEUMATOID ARTHRITIS
     Route: 065
     Dates: end: 2011
  3. METHOTREXATE [Concomitant]
     Route: 065
     Dates: start: 201201
  4. CLEMASTIN [Concomitant]
     Route: 042
     Dates: start: 20120710
  5. RANITIDIN [Concomitant]
     Route: 042
     Dates: start: 20120710
  6. SOLU-DECORTIN [Concomitant]
     Route: 042
     Dates: start: 20120710
  7. PARACETAMOL [Concomitant]
     Indication: PROPHYLAXIS
     Route: 048
     Dates: start: 20120710
  8. ASS-100 [Concomitant]
     Indication: PRODUCT USED FOR UNKNOWN INDICATION
     Route: 065
  9. BISOPROLOL [Concomitant]
     Indication: PRODUCT USED FOR UNKNOWN INDICATION
     Route: 065
  10. RAMIPRIL [Concomitant]
     Route: 065
  11. PREDNISOLON [Concomitant]
     Indication: PRODUCT USED FOR UNKNOWN INDICATION
     Route: 065

REACTIONS (4)
  - Cardiac arrest [Unknown]
  - Circulatory collapse [Unknown]
  - Myocardial ischaemia [Unknown]
  - Acute myocardial infarction [Unknown]
